FAERS Safety Report 20237414 (Version 1)
Quarter: 2021Q4

REPORT INFORMATION
  Report Type: Spontaneous
  Country: CA (occurrence: CA)
  Receive Date: 20211228
  Receipt Date: 20211228
  Transmission Date: 20220303
  Serious: Yes (Other)
  Sender: FDA-Public Use
  Company Number: CA-OTSUKA-2021_044058

PATIENT
  Age: 6 Decade
  Sex: Male

DRUGS (1)
  1. ABILIFY MAINTENA [Suspect]
     Active Substance: ARIPIPRAZOLE
     Indication: Product used for unknown indication
     Dosage: 300 MG
     Route: 065
     Dates: start: 20211129

REACTIONS (3)
  - Psychotic symptom [Unknown]
  - Exposure to extreme temperature [Unknown]
  - Underdose [Unknown]

NARRATIVE: CASE EVENT DATE: 20211129
